FAERS Safety Report 5227988-3 (Version None)
Quarter: 2007Q1

REPORT INFORMATION
  Report Type: 
  Country: None (occurrence: None)
  Receive Date: 20061206
  Receipt Date: 20060822
  Transmission Date: 20070707
  Serious: Yes (Death)
  Sender: FDA-Public Use
  Company Number: 460626

PATIENT
  Age: 41 Year
  Sex: Female

DRUGS (7)
  1. VALIUM [Suspect]
     Indication: DEPRESSION
     Dosage: 10 MG 2 PER DAY ORAL
     Route: 048
  2. AMITRIPTYLINE HCL [Suspect]
     Indication: DEPRESSION
     Dosage: 75 MG DAILY ORAL
     Route: 048
  3. KADIAN [Suspect]
     Indication: BACK PAIN
     Dosage: 60 MG DAILY ORAL
     Route: 048
     Dates: start: 20031022, end: 20031023
  4. LEXAPRO [Concomitant]
  5. OXYCODONE HCL [Concomitant]
  6. TRAMADOL HCL [Concomitant]
  7. CELEXA [Concomitant]

REACTIONS (2)
  - COMPLETED SUICIDE [None]
  - MULTIPLE DRUG OVERDOSE [None]
